FAERS Safety Report 7272524-3 (Version None)
Quarter: 2011Q1

REPORT INFORMATION
  Report Type: 
  Country: None (occurrence: None)
  Receive Date: 20110203
  Receipt Date: 20110131
  Transmission Date: 20110831
  Serious: Yes (Other)
  Sender: FDA-Public Use
  Company Number: US-JNJFOC-20101105049

PATIENT
  Age: 45 Year
  Sex: Male

DRUGS (1)
  1. NUCYNTA [Suspect]
     Indication: PAIN
     Route: 048

REACTIONS (4)
  - RENAL FAILURE [None]
  - CONSTIPATION [None]
  - VOMITING [None]
  - NAUSEA [None]
